FAERS Safety Report 15231498 (Version 3)
Quarter: 2018Q3

REPORT INFORMATION
  Report Type: Spontaneous
  Country: IT (occurrence: IT)
  Receive Date: 20180802
  Receipt Date: 20180920
  Transmission Date: 20181010
  Serious: Yes (Other)
  Sender: FDA-Public Use
  Company Number: PHHY2018IT062245

PATIENT
  Age: 50 Year
  Sex: Female

DRUGS (1)
  1. ZOMETA [Suspect]
     Active Substance: ZOLEDRONIC ACID
     Indication: METASTASES TO BONE
     Dosage: 4 MG, CYCLIC
     Route: 042

REACTIONS (2)
  - Osteonecrosis of jaw [Recovered/Resolved with Sequelae]
  - Tooth abscess [Recovered/Resolved with Sequelae]

NARRATIVE: CASE EVENT DATE: 20111125
